FAERS Safety Report 8218669-2 (Version None)
Quarter: 2012Q1

REPORT INFORMATION
  Report Type: 
  Country: None (occurrence: None)
  Receive Date: 20120319
  Receipt Date: 20120308
  Transmission Date: 20120608
  Serious: Yes (Death, Other)
  Sender: FDA-Public Use
  Company Number: PHHY2012MX015004

PATIENT
  Sex: Female

DRUGS (3)
  1. GLEEVEC [Suspect]
     Indication: CHRONIC MYELOID LEUKAEMIA
     Dosage: 400 MG, DAY
     Dates: start: 20110215
  2. GLEEVEC [Suspect]
     Dosage: 800 MG, UNK
  3. HYDROXYUREA [Suspect]
     Dosage: 1500 MG, UNK
     Dates: start: 20110915

REACTIONS (8)
  - DEATH [None]
  - DRUG INEFFECTIVE [None]
  - SPLENOMEGALY [None]
  - MATERNAL EXPOSURE DURING PREGNANCY [None]
  - VENOUS INSUFFICIENCY [None]
  - LEUKOCYTOSIS [None]
  - PNEUMONIA [None]
  - RESPIRATORY FAILURE [None]
